FAERS Safety Report 8220955 (Version 2)
Quarter: 2012Q4

REPORT INFORMATION
  Report Type: 
  Country: US (occurrence: US)
  Receive Date: 20111102
  Receipt Date: 20120917
  Transmission Date: 20130627
  Serious: Yes (Other)
  Sender: FDA-Public Use
  Company Number: US-US-EMD SERONO, INC.-7091534

PATIENT
  Age: 19 None
  Sex: Female

DRUGS (5)
  1. REBIF [Suspect]
     Indication: MULTIPLE SCLEROSIS
     Route: 058
     Dates: start: 20100628, end: 2011
  2. REBIF [Suspect]
     Route: 058
     Dates: start: 201110
  3. ZYRTEC [Concomitant]
     Indication: HYPERSENSITIVITY
  4. ALEVE [Concomitant]
     Indication: INJECTION SITE PAIN
  5. VITAMIN D2 [Concomitant]
     Indication: VITAMIN D DEFICIENCY

REACTIONS (5)
  - Injection site cellulitis [Recovered/Resolved]
  - Injection site abscess [Recovered/Resolved]
  - Insomnia [Not Recovered/Not Resolved]
  - Vision blurred [Unknown]
  - Influenza like illness [Not Recovered/Not Resolved]
